FAERS Safety Report 7801983-X (Version None)
Quarter: 2011Q4

REPORT INFORMATION
  Report Type: 
  Country: None (occurrence: None)
  Receive Date: 20111007
  Receipt Date: 20110927
  Transmission Date: 20120403
  Serious: Yes (Hospitalization)
  Sender: FDA-Public Use
  Company Number: PHFR2011GB04393

PATIENT
  Sex: Female

DRUGS (2)
  1. CLOZAPINE [Suspect]
     Route: 048
     Dates: start: 20070904
  2. LITHIUM [Concomitant]

REACTIONS (3)
  - SELF-INJURIOUS IDEATION [None]
  - MALAISE [None]
  - HAEMOGLOBIN DECREASED [None]
